FAERS Safety Report 15167412 (Version 2)
Quarter: 2018Q3

REPORT INFORMATION
  Report Type: Report from Study
  Country: JP (occurrence: JP)
  Receive Date: 20180719
  Receipt Date: 20180913
  Transmission Date: 20181010
  Serious: Yes (Hospitalization)
  Sender: FDA-Public Use
  Company Number: JP-PFIZER INC-2018282649

PATIENT
  Age: 74 Year
  Sex: Female
  Weight: 47.2 kg

DRUGS (7)
  1. AZULFIDINE EN?TABS [Concomitant]
     Active Substance: SULFASALAZINE
     Dosage: UNK
  2. ARAVA [Concomitant]
     Active Substance: LEFLUNOMIDE
     Dosage: UNK
     Dates: end: 20171207
  3. OSTELUC [Concomitant]
     Active Substance: ETODOLAC
     Route: 048
  4. SELBEX [Concomitant]
     Active Substance: TEPRENONE
     Route: 048
  5. XELJANZ [Suspect]
     Active Substance: TOFACITINIB CITRATE
     Indication: RHEUMATOID ARTHRITIS
     Dosage: 5 MG, 1X/DAY
     Route: 048
     Dates: start: 20150124, end: 20171207
  6. ADOFEED PAP [Concomitant]
     Active Substance: FLURBIPROFEN
     Route: 061
  7. ACTONEL [Concomitant]
     Active Substance: RISEDRONATE SODIUM
     Route: 048

REACTIONS (1)
  - Purulence [Recovered/Resolved]

NARRATIVE: CASE EVENT DATE: 20171207
